FAERS Safety Report 22687087 (Version 2)
Quarter: 2025Q2

REPORT INFORMATION
  Report Type: Spontaneous
  Country: US (occurrence: US)
  Receive Date: 20230710
  Receipt Date: 20250409
  Transmission Date: 20250716
  Serious: Yes (Other)
  Sender: TEVA
  Company Number: US-TEVA-2023-US-2900477

PATIENT
  Sex: Female

DRUGS (1)
  1. METHYLPHENIDATE HYDROCHLORIDE [Suspect]
     Active Substance: METHYLPHENIDATE HYDROCHLORIDE
     Indication: Attention deficit hyperactivity disorder
     Route: 065

REACTIONS (5)
  - Attention deficit hyperactivity disorder [Unknown]
  - Drug ineffective [Unknown]
  - Anxiety [Unknown]
  - Palpitations [Unknown]
  - Depression [Unknown]

NARRATIVE: CASE EVENT DATE: 20230601
